FAERS Safety Report 14813629 (Version 1)
Quarter: 2018Q2

REPORT INFORMATION
  Report Type: Spontaneous
  Country: US (occurrence: US)
  Receive Date: 20180426
  Receipt Date: 20180426
  Transmission Date: 20180711
  Serious: Yes (Hospitalization, Other)
  Sender: FDA-Public Use
  Company Number: US-APOTEX-2018AP010916

PATIENT
  Age: 15 Year
  Sex: Female

DRUGS (5)
  1. TACROLIMUS. [Suspect]
     Active Substance: TACROLIMUS
     Indication: IMMUNOSUPPRESSION
     Route: 065
  2. BASILIXIMAB [Suspect]
     Active Substance: BASILIXIMAB
     Indication: IMMUNOSUPPRESSION
     Route: 065
  3. CYCLOSPORINE. [Suspect]
     Active Substance: CYCLOSPORINE
     Indication: PROPHYLAXIS AGAINST GRAFT VERSUS HOST DISEASE
     Dosage: UNK
     Route: 065
     Dates: start: 2012
  4. MYCOPHENOLATE [Suspect]
     Active Substance: MYCOPHENOLIC ACID
     Indication: PROPHYLAXIS AGAINST GRAFT VERSUS HOST DISEASE
     Dosage: UNK
     Route: 065
     Dates: start: 2012
  5. MYCOPHENOLATE [Suspect]
     Active Substance: MYCOPHENOLIC ACID
     Indication: IMMUNOSUPPRESSION
     Dosage: UNK
     Route: 065
     Dates: start: 2015

REACTIONS (30)
  - Cystitis haemorrhagic [Unknown]
  - Device related infection [Unknown]
  - Hyperbilirubinaemia [Unknown]
  - Diarrhoea [Unknown]
  - Staphylococcal infection [Unknown]
  - Staphylococcal bacteraemia [Unknown]
  - Periorbital cellulitis [Unknown]
  - Drug ineffective [Unknown]
  - Overgrowth fungal [Unknown]
  - Cytomegalovirus viraemia [Recovered/Resolved]
  - Renal failure [Unknown]
  - Streptococcal bacteraemia [Unknown]
  - BK virus infection [Recovered/Resolved]
  - Adenovirus test positive [Recovered/Resolved]
  - Epstein-Barr virus infection [Recovered/Resolved]
  - Roseolovirus test positive [Unknown]
  - Dehydration [Unknown]
  - Streptococcus test positive [Unknown]
  - Giardia test positive [Unknown]
  - Malnutrition [Unknown]
  - Bacterial pyelonephritis [Unknown]
  - Growth hormone deficiency [Unknown]
  - Viraemia [Unknown]
  - Campylobacter infection [Unknown]
  - Ovarian failure [Unknown]
  - Moraxella test positive [Unknown]
  - Pneumonia adenoviral [Unknown]
  - Pneumonia haemophilus [Unknown]
  - Gastroenteritis adenovirus [Unknown]
  - Treatment noncompliance [Unknown]
